FAERS Safety Report 5670091-9 (Version None)
Quarter: 2008Q1

REPORT INFORMATION
  Report Type: 
  Country: None (occurrence: None)
  Receive Date: 20080317
  Receipt Date: 20080304
  Transmission Date: 20080703
  Serious: Yes (Hospitalization)
  Sender: FDA-Public Use
  Company Number: AU-AMGEN-QUU259121

PATIENT
  Age: 34 Year
  Sex: Female

DRUGS (3)
  1. NEULASTA [Suspect]
     Indication: CHEMOTHERAPY
     Route: 058
     Dates: start: 20070802, end: 20070802
  2. DOXORUBICIN HYDROCHLORIDE [Concomitant]
     Route: 042
     Dates: start: 20070801, end: 20070801
  3. CYCLOPHOSPHAMIDE [Concomitant]
     Route: 042
     Dates: start: 20070801, end: 20070801

REACTIONS (2)
  - DRUG INEFFECTIVE [None]
  - FEBRILE NEUTROPENIA [None]
